FAERS Safety Report 10829255 (Version 1)
Quarter: 2015Q1

REPORT INFORMATION
  Report Type: Report from Study
  Country: US (occurrence: US)
  Receive Date: 20150219
  Receipt Date: 20150219
  Transmission Date: 20150721
  Serious: Yes (Hospitalization, Other)
  Sender: FDA-Public Use
  Company Number: US-BRISTOL-MYERS SQUIBB COMPANY-20052619

PATIENT
  Age: 52 Year
  Sex: Male
  Weight: 70.3 kg

DRUGS (1)
  1. IPILIMUMAB [Suspect]
     Active Substance: IPILIMUMAB
     Indication: MALIGNANT MELANOMA
     Dosage: 242 MG, TOTAL
     Route: 042
     Dates: start: 20131205

REACTIONS (2)
  - Colitis [Recovered/Resolved with Sequelae]
  - Lymphocyte count decreased [Unknown]

NARRATIVE: CASE EVENT DATE: 20140103
